FAERS Safety Report 12701184 (Version 1)
Quarter: 2016Q3

REPORT INFORMATION
  Report Type: Spontaneous
  Country: DE (occurrence: DE)
  Receive Date: 20160831
  Receipt Date: 20160831
  Transmission Date: 20161109
  Serious: Yes (Disabling)
  Sender: FDA-Public Use
  Company Number: DE-SUN PHARMACEUTICAL INDUSTRIES LTD-2016RR-122679

PATIENT
  Age: 51 Year
  Sex: Female
  Weight: 97 kg

DRUGS (9)
  1. MONO-EMBOLEX [Concomitant]
     Active Substance: CERTOPARIN SODIUM
     Indication: THROMBOSIS PROPHYLAXIS
     Dosage: DAILY DOSE: 3000 IU INTERNATIONAL UNIT(S) EVERY DAYS
     Route: 058
     Dates: start: 20160330, end: 201605
  2. CLINDAMYCIN [Suspect]
     Active Substance: CLINDAMYCIN\CLINDAMYCIN PHOSPHATE
     Indication: OSTEITIS
     Dosage: DAILY DOSE: 1800MG MILIGRAM(S) EVERY DAYS
     Route: 048
     Dates: start: 20160325, end: 20160402
  3. PIPERACILLIN/TAZOBACTAM [Suspect]
     Active Substance: PIPERACILLIN SODIUM\TAZOBACTAM SODIUM
     Indication: OSTEITIS
     Dosage: DAILY DOSE: 13.5 G GRAM(S) EVERY DAYS
     Route: 042
     Dates: start: 20160402, end: 20160407
  4. TRAMAL LONG [Concomitant]
     Active Substance: TRAMADOL
     Indication: PAIN
     Dosage: DAILY DOSE 100 MG MILLGRAM(S) EVERY DAYS
     Route: 048
     Dates: start: 20160330, end: 20160423
  5. NOVALGIN [Concomitant]
     Active Substance: METAMIZOLE SODIUM
     Indication: PAIN
     Dosage: DILY DOSE: 2000 MG MILLGRAM(S) EVERY DAYS
     Route: 048
     Dates: start: 20160330, end: 201605
  6. DOXYCYCLIN [Concomitant]
     Active Substance: DOXYCYCLINE
     Indication: OSTEITIS
     Dosage: DAILY DOSE: 200 MG MILLGRAM(S) EVERY DAYS
     Route: 048
     Dates: start: 20160408, end: 201605
  7. PANTOZOL [Concomitant]
     Active Substance: PANTOPRAZOLE SODIUM
     Indication: GASTRITIS
     Dosage: DAILY DOSE: 40 MG MILLGRAM(S) EVERY DAYS
     Route: 048
     Dates: start: 20160416, end: 20160423
  8. CIPROFLOXACIN. [Suspect]
     Active Substance: CIPROFLOXACIN
     Indication: OSTEITIS
     Dosage: DAILY DOSE: 1000 MG MILIGRAM(S) EVERY DAYS
     Route: 048
     Dates: start: 20160402, end: 20160419
  9. CLINDAMYCIN [Concomitant]
     Active Substance: CLINDAMYCIN\CLINDAMYCIN PHOSPHATE
     Indication: PRODUCT USED FOR UNKNOWN INDICATION
     Dosage: DAILY DOSE: 1800 MG MILLGRAM(S) EVERY DAYS
     Route: 048
     Dates: start: 20160412, end: 20160419

REACTIONS (3)
  - Tendon pain [Not Recovered/Not Resolved]
  - Epicondylitis [Not Recovered/Not Resolved]
  - Sensory loss [Not Recovered/Not Resolved]

NARRATIVE: CASE EVENT DATE: 201604
